FAERS Safety Report 16156530 (Version 2)
Quarter: 2019Q2

REPORT INFORMATION
  Report Type: Spontaneous
  Country: US (occurrence: US)
  Receive Date: 20190404
  Receipt Date: 20190426
  Transmission Date: 20190711
  Serious: Yes (Life-Threatening, Hospitalization, Other)
  Sender: FDA-Public Use
  Company Number: US-ACCORD-117858

PATIENT
  Age: 71 Year
  Sex: Male

DRUGS (8)
  1. RASAGILINE. [Concomitant]
     Active Substance: RASAGILINE
     Indication: PRODUCT USED FOR UNKNOWN INDICATION
  2. FENTANYL. [Concomitant]
     Active Substance: FENTANYL
  3. TPN [Interacting]
     Active Substance: AMINO ACIDS\DEXTROSE\ELECTROLYTES NOS\SOYBEAN OIL
     Indication: PRODUCT USED FOR UNKNOWN INDICATION
  4. PROPOFOL. [Concomitant]
     Active Substance: PROPOFOL
  5. CARBIDOPA/LEVODOPA [Suspect]
     Active Substance: CARBIDOPA\LEVODOPA
     Indication: PARKINSON^S DISEASE
     Dosage: 25-100 MG
  6. LIDOCAINE. [Concomitant]
     Active Substance: LIDOCAINE
  7. DIAZEPAM. [Concomitant]
     Active Substance: DIAZEPAM
     Indication: PRODUCT USED FOR UNKNOWN INDICATION
     Dosage: NIGHTLY
  8. VECURONIUM [Concomitant]
     Active Substance: VECURONIUM BROMIDE

REACTIONS (3)
  - Neuroleptic malignant syndrome [Recovered/Resolved]
  - Food interaction [Unknown]
  - Drug interaction [Unknown]
